FAERS Safety Report 20023685 (Version 2)
Quarter: 2021Q4

REPORT INFORMATION
  Report Type: Spontaneous
  Country: AU (occurrence: AU)
  Receive Date: 20211102
  Receipt Date: 20211123
  Transmission Date: 20220304
  Serious: Yes (Disabling, Other)
  Sender: FDA-Public Use
  Company Number: AU-CELGENE-AUS-20211007477

PATIENT
  Age: 92 Year
  Sex: Male
  Weight: 83 kg

DRUGS (13)
  1. ENASIDENIB [Suspect]
     Active Substance: ENASIDENIB
     Indication: Acute myeloid leukaemia
     Dosage: 100 MILLIGRAM
     Route: 048
     Dates: start: 20180913, end: 20211026
  2. DENOSUMAB [Concomitant]
     Active Substance: DENOSUMAB
     Indication: Product used for unknown indication
     Route: 058
  3. ALLOPURINOL [Concomitant]
     Active Substance: ALLOPURINOL
     Indication: Prophylaxis
     Route: 065
     Dates: start: 20211021, end: 20211101
  4. AUGMENTIN [Concomitant]
     Active Substance: AMOXICILLIN\CLAVULANATE POTASSIUM
     Indication: Pyrexia
     Dosage: 170 MILLIGRAM
     Route: 065
     Dates: start: 20211020, end: 20211027
  5. ENOXAPARIN [Concomitant]
     Active Substance: ENOXAPARIN
     Indication: Hypervolaemia
     Dosage: 80 MILLIGRAM
     Route: 065
     Dates: start: 20211018, end: 20211024
  6. METOCLOPRAMIDE [Concomitant]
     Active Substance: METOCLOPRAMIDE
     Indication: Nausea
     Dosage: 10 MILLIGRAM
     Route: 065
     Dates: start: 20211017, end: 20211102
  7. METRONIDAZOLE [Concomitant]
     Active Substance: METRONIDAZOLE
     Indication: Pyrexia
     Dosage: 500 MILLIGRAM
     Route: 041
     Dates: start: 20211017, end: 20211017
  8. PALONOSETRON [Concomitant]
     Active Substance: PALONOSETRON
     Indication: Premedication
     Dosage: 250 MILLIGRAM
     Route: 065
     Dates: start: 20211022, end: 20211022
  9. PANTOPRAZOLE [Concomitant]
     Active Substance: PANTOPRAZOLE
     Indication: Product used for unknown indication
     Dosage: 20 MILLIGRAM
     Route: 065
     Dates: start: 20211018, end: 20211104
  10. ACETAMINOPHEN [Concomitant]
     Active Substance: ACETAMINOPHEN
     Indication: Analgesic therapy
     Dosage: 1000 MILLIGRAM
     Route: 065
     Dates: start: 20211017, end: 20211104
  11. PHYTONADIONE [Concomitant]
     Active Substance: PHYTONADIONE
     Indication: Vitamin K deficiency
     Dosage: 10 MILLIGRAM
     Route: 041
     Dates: start: 20211018, end: 20211019
  12. PROMETHAZINE [Concomitant]
     Active Substance: PROMETHAZINE HYDROCHLORIDE
     Indication: Nausea
     Dosage: 12.5 MILLIGRAM
     Route: 041
     Dates: start: 20211021, end: 20211021
  13. FUROSEMIDE [Concomitant]
     Active Substance: FUROSEMIDE
     Indication: Hypervolaemia
     Route: 065
     Dates: start: 20211024, end: 20211024

REACTIONS (1)
  - Diffuse large B-cell lymphoma stage IV [Not Recovered/Not Resolved]

NARRATIVE: CASE EVENT DATE: 20211015
